FAERS Safety Report 7352721-9 (Version None)
Quarter: 2011Q1

REPORT INFORMATION
  Report Type: 
  Country: None (occurrence: None)
  Receive Date: 20110315
  Receipt Date: 20110309
  Transmission Date: 20110831
  Serious: Yes (Death, Hospitalization, Other)
  Sender: FDA-Public Use
  Company Number: US-PFIZER INC-2005092327

PATIENT
  Sex: Female

DRUGS (6)
  1. CLORAZEPATE DIPOTASSIUM [Concomitant]
     Dosage: UNK
  2. DEPAKOTE [Concomitant]
     Dosage: UNK
  3. NEURONTIN [Suspect]
     Dosage: 300 MG, UNK
  4. REMERON [Concomitant]
     Dosage: UNK
  5. AMBIEN [Concomitant]
     Dosage: UNK
  6. SEROQUEL [Concomitant]
     Dosage: UNK

REACTIONS (9)
  - SUICIDE ATTEMPT [None]
  - ENCEPHALOPATHY [None]
  - DRUG INEFFECTIVE [None]
  - SUICIDAL IDEATION [None]
  - MULTI-ORGAN FAILURE [None]
  - DEPRESSION [None]
  - INSOMNIA [None]
  - COMPLETED SUICIDE [None]
  - MULTIPLE DRUG OVERDOSE [None]
